FAERS Safety Report 6442843-9 (Version None)
Quarter: 2009Q4

REPORT INFORMATION
  Report Type: 
  Country: None (occurrence: None)
  Receive Date: 20091117
  Receipt Date: 20091113
  Transmission Date: 20100525
  Serious: Yes (Death, Hospitalization)
  Sender: FDA-Public Use
  Company Number: IT-NAPPMUNDI-GBR-2009-0005699

PATIENT
  Sex: Male
  Weight: 80 kg

DRUGS (2)
  1. MST CONTINUS TABLETS [Suspect]
     Indication: CANCER PAIN
     Dosage: 30 MG, BID
     Route: 048
     Dates: start: 20090731, end: 20090812
  2. RAD001 [Suspect]
     Indication: METASTATIC RENAL CELL CARCINOMA
     Dosage: 10 MG, DAILY
     Route: 048
     Dates: start: 20090801, end: 20090811

REACTIONS (3)
  - DEATH [None]
  - NAUSEA [None]
  - VOMITING [None]
